FAERS Safety Report 4520391-0 (Version None)
Quarter: 2004Q4

REPORT INFORMATION
  Report Type: 
  Country: None (occurrence: None)
  Receive Date: 20041203
  Receipt Date: 20041110
  Transmission Date: 20050328
  Serious: Yes (Other)
  Sender: FDA-Public Use
  Company Number: 2004243165JP

PATIENT
  Age: 31 Year
  Sex: Male

DRUGS (7)
  1. CLINDAMYCIN PHOSPHATE SOLUTION, STERILE (CLINDAMYCIN PHOSPHATE) [Suspect]
     Indication: ILL-DEFINED DISORDER
     Dosage: INTRAVENOUS
     Route: 042
  2. UNASYN [Suspect]
     Indication: ILL-DEFINED DISORDER
     Dosage: INTRAVENOUS
     Route: 042
  3. FLUVOXAMINE MALEATE [Suspect]
     Indication: SCHIZOPHRENIA
     Dosage: 150 MG, ORAL
     Route: 048
     Dates: end: 20041102
  4. OLANZAPINE [Suspect]
     Indication: SCHIZOPHRENIA
     Dosage: 20 MG, ORAL
     Route: 048
     Dates: end: 20041102
  5. LOXOPROFEN SODIUM (LOXOPROFEN SODIUM) [Concomitant]
  6. PAROXETINE HCL [Concomitant]
  7. LEVOMEPROMAZINE MALEATE (LEVOMEPROMAZINE MALEATE) [Concomitant]

REACTIONS (2)
  - BLOOD CREATINE PHOSPHOKINASE INCREASED [None]
  - PERITONSILLAR ABSCESS [None]
